FAERS Safety Report 6452308-6 (Version None)
Quarter: 2009Q4

REPORT INFORMATION
  Report Type: 
  Country: None (occurrence: None)
  Receive Date: 20091123
  Receipt Date: 20091113
  Transmission Date: 20100525
  Serious: Yes (Hospitalization)
  Sender: FDA-Public Use
  Company Number: ES-BAUSCH-2009BL006053

PATIENT
  Age: 13 Year
  Sex: Male
  Weight: 90 kg

DRUGS (4)
  1. ALBUTEROL [Suspect]
     Indication: ASTHMA
     Route: 049
  2. ALBUTEROL [Suspect]
     Route: 049
  3. IPRATROPIUM BROMIDE [Concomitant]
     Route: 049
  4. METHYLPREDNISOLONE [Concomitant]
     Route: 042

REACTIONS (1)
  - LACTIC ACIDOSIS [None]
